FAERS Safety Report 6182998-7 (Version None)
Quarter: 2009Q2

REPORT INFORMATION
  Report Type: 
  Country: None (occurrence: None)
  Receive Date: 20090507
  Receipt Date: 20090428
  Transmission Date: 20091009
  Serious: Yes (Other)
  Sender: FDA-Public Use
  Company Number: PHBS2008BR06505

PATIENT
  Age: 85 Year

DRUGS (3)
  1. IMATINIB MESYLATE [Suspect]
     Indication: CHRONIC MYELOID LEUKAEMIA
     Dosage: 400 MG/DAY
  2. IMATINIB MESYLATE [Suspect]
     Dosage: 400 MG/DAY
  3. IMATINIB MESYLATE [Suspect]
     Dosage: 600 MG/DAY

REACTIONS (7)
  - BIOPSY SKIN [None]
  - EYE OEDEMA [None]
  - GASTRIC ULCER HAEMORRHAGE [None]
  - INFLAMMATION [None]
  - LIP ULCERATION [None]
  - PRURITUS [None]
  - SKIN LESION [None]
